FAERS Safety Report 7805208-0 (Version None)
Quarter: 2011Q4

REPORT INFORMATION
  Report Type: 
  Country: None (occurrence: None)
  Receive Date: 20111010
  Receipt Date: 20110930
  Transmission Date: 20120403
  Serious: Yes (Hospitalization)
  Sender: FDA-Public Use
  Company Number: JP-NOVOPROD-332694

PATIENT

DRUGS (5)
  1. GLIMICRON [Concomitant]
     Indication: PROPHYLAXIS
     Dosage: 20 MG, QD
     Route: 048
     Dates: start: 20100715
  2. VICTOZA [Suspect]
     Indication: TYPE 2 DIABETES MELLITUS
     Dosage: 0.3 MG, QD
     Route: 058
     Dates: start: 20100803
  3. VICTOZA [Suspect]
     Dosage: 0.6 MG, QD
     Route: 058
     Dates: start: 20100824, end: 20110602
  4. PLETAL [Concomitant]
     Dosage: 100 MG, QD
     Route: 048
     Dates: start: 20100727
  5. GLIMICRON [Concomitant]
     Dosage: 20 MG, QD
     Route: 048
     Dates: start: 20101214

REACTIONS (2)
  - HYPERAMYLASAEMIA [None]
  - NAUSEA [None]
